FAERS Safety Report 9160364 (Version 1)
Quarter: 2013Q1

REPORT INFORMATION
  Report Type: Spontaneous
  Country: FR (occurrence: None)
  Receive Date: 20130219
  Receipt Date: 20130219
  Transmission Date: 20140127
  Serious: Yes (Hospitalization, Congenital Anomaly)
  Sender: FDA-Public Use
  Company Number: DSM-2013-00159

PATIENT
  Sex: Female
  Weight: .95 kg

DRUGS (1)
  1. COOLMETEC [Suspect]
     Indication: HYPERTENSION
     Dosage: 20/12.5 MG, INTRA-UTERINE
     Route: 015
     Dates: start: 201001, end: 20100730

REACTIONS (6)
  - Premature baby [None]
  - Renal dysplasia [None]
  - Maternal drugs affecting foetus [None]
  - Ileal perforation [None]
  - Pneumoperitoneum [None]
  - Renal failure [None]
